FAERS Safety Report 8174085-3 (Version None)
Quarter: 2012Q1

REPORT INFORMATION
  Report Type: 
  Country: None (occurrence: None)
  Receive Date: 20120229
  Receipt Date: 20120222
  Transmission Date: 20120608
  Serious: Yes (Death, Life-Threatening, Hospitalization)
  Sender: FDA-Public Use
  Company Number: JP-ROCHE-779701

PATIENT
  Sex: Male
  Weight: 56 kg

DRUGS (2)
  1. XELODA [Suspect]
     Indication: RECTAL CANCER
     Route: 048
     Dates: start: 20110509, end: 20110521
  2. PYDOXAL [Concomitant]
     Route: 048
     Dates: start: 20110509, end: 20110521

REACTIONS (8)
  - PALMAR-PLANTAR ERYTHRODYSAESTHESIA SYNDROME [None]
  - FEBRILE NEUTROPENIA [None]
  - PNEUMONIA [None]
  - MELAENA [None]
  - PLATELET COUNT DECREASED [None]
  - NEUTROPHIL COUNT DECREASED [None]
  - THROMBOCYTOPENIA [None]
  - ORAL DISORDER [None]
